FAERS Safety Report 8189054-7 (Version None)
Quarter: 2012Q1

REPORT INFORMATION
  Report Type: 
  Country: None (occurrence: None)
  Receive Date: 20120307
  Receipt Date: 20120301
  Transmission Date: 20120608
  Serious: No
  Sender: FDA-Public Use
  Company Number: US-BIOGENIDEC-2012BI007683

PATIENT
  Age: 48 Year
  Sex: Female

DRUGS (3)
  1. PRISTIQ [Concomitant]
     Indication: DEPRESSION
  2. TYSABRI [Suspect]
     Indication: MULTIPLE SCLEROSIS
     Route: 042
     Dates: start: 20100601
  3. INSULIN (NOS) [Concomitant]
     Indication: TYPE 1 DIABETES MELLITUS
     Dates: start: 19710101

REACTIONS (5)
  - BLOOD CREATININE INCREASED [None]
  - GLOMERULAR FILTRATION RATE DECREASED [None]
  - OEDEMA PERIPHERAL [None]
  - HYPERTENSION [None]
  - BLOOD PRESSURE SYSTOLIC INCREASED [None]
